FAERS Safety Report 11938593 (Version 2)
Quarter: 2016Q1

REPORT INFORMATION
  Report Type: Spontaneous
  Country: US (occurrence: US)
  Receive Date: 20160122
  Receipt Date: 20160224
  Transmission Date: 20160526
  Serious: Yes (Life-Threatening, Hospitalization)
  Sender: FDA-Public Use
  Company Number: US-JNJFOC-20160113867

PATIENT
  Sex: Female

DRUGS (1)
  1. INVOKANA [Suspect]
     Active Substance: CANAGLIFLOZIN
     Indication: DIABETES MELLITUS MANAGEMENT
     Route: 048
     Dates: start: 20140603

REACTIONS (7)
  - Sepsis [Unknown]
  - Coma [Unknown]
  - Metabolic encephalopathy [Unknown]
  - Acute kidney injury [Unknown]
  - Neuralgia [Not Recovered/Not Resolved]
  - Diabetic ketoacidosis [Unknown]
  - Hallucination [Unknown]

NARRATIVE: CASE EVENT DATE: 201506
